FAERS Safety Report 5719116-2 (Version None)
Quarter: 2008Q2

REPORT INFORMATION
  Report Type: 
  Country: None (occurrence: None)
  Receive Date: 20080428
  Receipt Date: 20080421
  Transmission Date: 20081010
  Serious: Yes (Hospitalization)
  Sender: FDA-Public Use
  Company Number: JP-SP-2008-01089

PATIENT
  Age: 61 Year
  Sex: Male

DRUGS (5)
  1. IMMUCYST [Suspect]
     Indication: BLADDER CANCER
     Route: 043
     Dates: start: 20071026, end: 20071226
  2. IMMUCYST [Suspect]
     Route: 043
     Dates: start: 20071026, end: 20071226
  3. ZOPICLONE [Concomitant]
     Dates: start: 20071014, end: 20071021
  4. ZOPICLONE [Concomitant]
     Dates: start: 20071109, end: 20071213
  5. LOXOPROFEN SODIUM [Concomitant]
     Dates: start: 20071026, end: 20071102

REACTIONS (2)
  - EPIDIDYMITIS [None]
  - PROSTATITIS [None]
